FAERS Safety Report 4893147-7 (Version None)
Quarter: 2005Q4

REPORT INFORMATION
  Report Type: 
  Country: None (occurrence: None)
  Receive Date: 20051223
  Receipt Date: 20051031
  Transmission Date: 20060501
  Serious: No
  Sender: FDA-Public Use
  Company Number: 219054

PATIENT
  Age: 49 Year
  Sex: Female

DRUGS (2)
  1. AVASTIN [Suspect]
     Indication: OVARIAN CANCER
     Dosage: 300 MG, Q2W, SUBCUTANEOUS
     Route: 058
     Dates: start: 20050930
  2. TOPOTECAN(TOPOTECAN HYDROCHLORIDE) [Suspect]
     Indication: OVARIAN CANCER
     Dosage: 1/WEEK

REACTIONS (4)
  - CONSTIPATION [None]
  - FATIGUE [None]
  - NAUSEA [None]
  - NEUTROPENIA [None]
